FAERS Safety Report 25990781 (Version 1)
Quarter: 2025Q4

REPORT INFORMATION
  Report Type: Spontaneous
  Country: US (occurrence: None)
  Receive Date: 20251103
  Receipt Date: 20251103
  Transmission Date: 20260118
  Serious: Yes (Disabling)
  Sender: ORGANON
  Company Number: US-MLMSERVICE-20251020-PI681753-00080-1

PATIENT
  Age: 7 Year
  Sex: Female

DRUGS (1)
  1. SINEMET [Suspect]
     Active Substance: CARBIDOPA\LEVODOPA
     Indication: Action tremor
     Dosage: UNK

REACTIONS (2)
  - Dyskinesia [Recovering/Resolving]
  - Off label use [Unknown]
